FAERS Safety Report 6671342-4 (Version None)
Quarter: 2010Q2

REPORT INFORMATION
  Report Type: 
  Country: None (occurrence: None)
  Receive Date: 20100407
  Receipt Date: 20100405
  Transmission Date: 20101027
  Serious: Yes (Hospitalization)
  Sender: FDA-Public Use
  Company Number: A0798121A

PATIENT
  Age: 35 Year
  Sex: Male

DRUGS (2)
  1. AVANDIA [Suspect]
     Indication: DIABETES MELLITUS
     Route: 048
  2. AVANDAMET [Suspect]
     Route: 065
     Dates: start: 20001001, end: 20090428

REACTIONS (4)
  - AMNESIA [None]
  - CHEST PAIN [None]
  - INJURY [None]
  - PULMONARY ARTERIAL HYPERTENSION [None]
